FAERS Safety Report 10685152 (Version 1)
Quarter: 2014Q4

REPORT INFORMATION
  Report Type: Spontaneous
  Country: US (occurrence: None)
  Receive Date: 20141230
  Receipt Date: 20141230
  Transmission Date: 20150529
  Serious: Yes (Disabling)
  Sender: FDA-Public Use
  Company Number: None

PATIENT
  Age: 67 Year
  Sex: Male
  Weight: 71.22 kg

DRUGS (1)
  1. L-ARGININE [Suspect]
     Active Substance: ARGININE
     Indication: ANGIOPATHY
     Dosage: BY MOUTH + POWDER FROM INSIDE CAPSULE (JUST CAPSULES) CAUSED BURNING/INFLAMMATION IN MOUTH)
     Route: 048
     Dates: start: 20141203, end: 20141203

REACTIONS (2)
  - Stomatitis [None]
  - Oral pain [None]

NARRATIVE: CASE EVENT DATE: 20141203
